FAERS Safety Report 18355694 (Version 1)
Quarter: 2020Q4

REPORT INFORMATION
  Report Type: Spontaneous
  Country: US (occurrence: US)
  Receive Date: 20201006
  Receipt Date: 20201006
  Transmission Date: 20210114
  Serious: Yes (Hospitalization)
  Sender: FDA-Public Use
  Company Number: None

PATIENT
  Age: 62 Year
  Sex: Female

DRUGS (15)
  1. BUSPIRONE [Concomitant]
     Active Substance: BUSPIRONE HYDROCHLORIDE
  2. NITROFUR MAC [Concomitant]
     Active Substance: NITROFURANTOIN
  3. BASAGLAR [Concomitant]
     Active Substance: INSULIN GLARGINE
  4. CITRALPRAM [Concomitant]
  5. ESOMPRA MAG [Concomitant]
  6. HUMIRA [Suspect]
     Active Substance: ADALIMUMAB
     Indication: PSORIATIC ARTHROPATHY
     Dosage: OTHER DOSE:1 PEN;?
     Route: 058
     Dates: start: 20190625
  7. VICOZA [Concomitant]
  8. AMLODIPINE [Concomitant]
     Active Substance: AMLODIPINE BESYLATE
  9. FLICONAZOLE [Concomitant]
  10. METOPROL SUC ER [Concomitant]
  11. HYDROCO/APAP [Concomitant]
     Active Substance: ACETAMINOPHEN\HYDROCODONE
  12. METFORMIN [Concomitant]
     Active Substance: METFORMIN HYDROCHLORIDE
  13. SMZ/MP DS [Concomitant]
  14. AMOXICILLIN. [Concomitant]
     Active Substance: AMOXICILLIN
  15. TRAMADOL HCL [Concomitant]
     Active Substance: TRAMADOL HYDROCHLORIDE

REACTIONS (2)
  - Hospitalisation [None]
  - Therapy interrupted [None]

NARRATIVE: CASE EVENT DATE: 20201002
